FAERS Safety Report 18273747 (Version 1)
Quarter: 2020Q3

REPORT INFORMATION
  Report Type: Spontaneous
  Country: FR (occurrence: FR)
  Receive Date: 20200916
  Receipt Date: 20200916
  Transmission Date: 20201103
  Serious: Yes (Life-Threatening, Hospitalization)
  Sender: FDA-Public Use
  Company Number: FR-MYLANLABS-2020M1079474

PATIENT
  Age: 73 Year
  Sex: Male

DRUGS (21)
  1. CIPROFLOXACIN. [Suspect]
     Active Substance: CIPROFLOXACIN
     Indication: ANTIBIOTIC THERAPY
     Dosage: 750 MILLIGRAM, BID
     Route: 065
  2. CIPROFLOXACIN. [Suspect]
     Active Substance: CIPROFLOXACIN
     Indication: AEROMONAS INFECTION
  3. LOMUSTIN [Suspect]
     Active Substance: LOMUSTINE
     Indication: CHEMOTHERAPY
     Route: 065
  4. LOMUSTIN [Suspect]
     Active Substance: LOMUSTINE
     Indication: ACUTE MYELOID LEUKAEMIA
  5. MEROPENEM. [Suspect]
     Active Substance: MEROPENEM
     Indication: EVIDENCE BASED TREATMENT
     Dosage: 6 GRAM, QD
     Route: 065
  6. AMIKACIN. [Concomitant]
     Active Substance: AMIKACIN
     Indication: AEROMONAS INFECTION
  7. CEFEPIME [Concomitant]
     Active Substance: CEFEPIME HYDROCHLORIDE
     Indication: ANTIBIOTIC THERAPY
     Dosage: 6 GRAM, QD
     Route: 065
  8. AZACITIDINE. [Suspect]
     Active Substance: AZACITIDINE
     Indication: CHEMOTHERAPY
     Dosage: 75 MILLIGRAM/SQ. METER, CYCLE AZACYTIDINE 75 MG/M2 /DAY FOR A SEVEN..
     Route: 065
  9. MEROPENEM. [Suspect]
     Active Substance: MEROPENEM
     Indication: AEROMONAS INFECTION
  10. PIPERACILLIN/TAZOBACTAM [Concomitant]
     Active Substance: PIPERACILLIN SODIUM\TAZOBACTAM SODIUM
     Indication: AEROMONAS INFECTION
  11. VANCOMYCIN [Concomitant]
     Active Substance: VANCOMYCIN
     Indication: AEROMONAS INFECTION
  12. ARACYTIN [Suspect]
     Active Substance: CYTARABINE
     Indication: ACUTE MYELOID LEUKAEMIA
     Dosage: CONSOLIDATION CHEMOTHERAPY COURSE
     Route: 065
  13. AMIKACIN. [Concomitant]
     Active Substance: AMIKACIN
     Indication: ANTIBIOTIC THERAPY
     Dosage: 1800 MILLIGRAM SINGLE DOSE
     Route: 065
  14. VANCOMYCIN [Concomitant]
     Active Substance: VANCOMYCIN
     Indication: ANTIBIOTIC THERAPY
     Dosage: 2 GRAM, QD
  15. ARACYTIN [Suspect]
     Active Substance: CYTARABINE
     Indication: CHEMOTHERAPY
     Dosage: INDUCTION CHEMOTHERAPY
     Route: 065
  16. PIPERACILLIN/TAZOBACTAM [Concomitant]
     Active Substance: PIPERACILLIN SODIUM\TAZOBACTAM SODIUM
     Indication: ANTIBIOTIC THERAPY
     Dosage: 1 DOSAGE FORM, QID PIPERACILLIN/TAZOBACTAM 4 G/500..
     Route: 065
  17. CEFEPIME [Concomitant]
     Active Substance: CEFEPIME HYDROCHLORIDE
     Indication: AEROMONAS INFECTION
  18. IDARUBICIN [Suspect]
     Active Substance: IDARUBICIN
     Indication: CHEMOTHERAPY
     Dosage: INDUCTION CHEMOTHERAPY
     Route: 065
  19. IDARUBICIN [Suspect]
     Active Substance: IDARUBICIN
     Indication: ACUTE MYELOID LEUKAEMIA
     Dosage: CONSOLIDATION CHEMOTHERAPY COURSE
     Route: 065
  20. AZACITIDINE. [Suspect]
     Active Substance: AZACITIDINE
     Indication: ACUTE MYELOID LEUKAEMIA
  21. MEROPENEM. [Suspect]
     Active Substance: MEROPENEM
     Indication: ANTIBIOTIC THERAPY

REACTIONS (6)
  - Septic shock [Recovered/Resolved]
  - Necrotising fasciitis [Recovered/Resolved]
  - Pathogen resistance [Unknown]
  - Abscess limb [Recovered/Resolved]
  - Aeromonas infection [Recovered/Resolved]
  - Abscess bacterial [Recovered/Resolved]
